FAERS Safety Report 4941618-7 (Version None)
Quarter: 2006Q1

REPORT INFORMATION
  Report Type: 
  Country: None (occurrence: None)
  Receive Date: 20060308
  Receipt Date: 20060301
  Transmission Date: 20060701
  Serious: No
  Sender: FDA-Public Use
  Company Number: 2005-135685-NL

PATIENT
  Age: 62 Year
  Sex: Female

DRUGS (7)
  1. DEXAMETHASONE SODIUM PHOSPHATE [Suspect]
     Dosage: 5 ML QD INTRAVENOUS (NOS)
     Route: 042
     Dates: start: 20051118, end: 20051118
  2. DEXAMETHASONE SODIUM PHOSPHATE [Suspect]
     Dosage: 5 ML QD INTRAVENOUS (NOS)
     Route: 042
     Dates: start: 20051207, end: 20051207
  3. FAMOTIDINE [Concomitant]
  4. DIPHENHYDRAMINE HYDROCHLORIDE [Concomitant]
  5. TAXOL [Concomitant]
  6. ISOTONIC SODIUM CHLORIDE SOLUTION [Concomitant]
  7. GLUCOSE [Concomitant]

REACTIONS (3)
  - ANAPHYLACTIC SHOCK [None]
  - DEFAECATION URGENCY [None]
  - LOSS OF CONSCIOUSNESS [None]
